FAERS Safety Report 4337845-2 (Version None)
Quarter: 2004Q2

REPORT INFORMATION
  Report Type: 
  Country: None (occurrence: None)
  Receive Date: 20040408
  Receipt Date: 20040325
  Transmission Date: 20050107
  Serious: Yes (Hospitalization)
  Sender: FDA-Public Use
  Company Number: MAG-2004-0000252

PATIENT
  Age: 75 Year
  Sex: Female

DRUGS (2)
  1. POVIDONE IODINE [Suspect]
     Indication: DERMATITIS CONTACT
     Dosage: TOPITAL
     Route: 061
     Dates: start: 20040119, end: 20040121
  2. AUGMENTIN [Suspect]
     Indication: DERMATITIS CONTACT
     Dosage: ORAL
     Route: 048
     Dates: start: 20040119, end: 20040121

REACTIONS (3)
  - CONDITION AGGRAVATED [None]
  - ECZEMA [None]
  - TOXIC SKIN ERUPTION [None]
